FAERS Safety Report 17911581 (Version 1)
Quarter: 2020Q2

REPORT INFORMATION
  Report Type: Spontaneous
  Country: US (occurrence: US)
  Receive Date: 20200618
  Receipt Date: 20200618
  Transmission Date: 20200714
  Serious: Yes (Disabling)
  Sender: FDA-Public Use
  Company Number: None

PATIENT
  Age: 56 Year
  Sex: Female
  Weight: 77.4 kg

DRUGS (15)
  1. SINGULAIR [Suspect]
     Active Substance: MONTELUKAST SODIUM
     Indication: ASTHMA
     Dosage: ?          QUANTITY:1 TABLET(S);?
     Route: 048
  2. XANAX [Concomitant]
     Active Substance: ALPRAZOLAM
  3. EPIPEN [Concomitant]
     Active Substance: EPINEPHRINE
  4. AMBIEN [Concomitant]
     Active Substance: ZOLPIDEM TARTRATE
  5. DAILY VITAMINS [Concomitant]
     Active Substance: VITAMINS
  6. ALBUTEROL. [Concomitant]
     Active Substance: ALBUTEROL
  7. DUREZOL [Concomitant]
     Active Substance: DIFLUPREDNATE
  8. ROBAXIN [Concomitant]
     Active Substance: METHOCARBAMOL
  9. MONTELUKAST [Concomitant]
     Active Substance: MONTELUKAST SODIUM
  10. ZOLOFT [Concomitant]
     Active Substance: SERTRALINE HYDROCHLORIDE
  11. WARFARIN FOR AVR [Concomitant]
  12. CELEBREX [Concomitant]
     Active Substance: CELECOXIB
  13. VYVANSE [Concomitant]
     Active Substance: LISDEXAMFETAMINE DIMESYLATE
  14. DAILY CALCIUM [Concomitant]
  15. ASA [Concomitant]
     Active Substance: ASPIRIN

REACTIONS (10)
  - Anger [None]
  - Aggression [None]
  - Cognitive disorder [None]
  - Major depression [None]
  - Loss of employment [None]
  - Anxiety [None]
  - Panic attack [None]
  - Hyperhidrosis [None]
  - Attention deficit hyperactivity disorder [None]
  - Abnormal behaviour [None]

NARRATIVE: CASE EVENT DATE: 20190101
